FAERS Safety Report 7626556-3 (Version None)
Quarter: 2011Q3

REPORT INFORMATION
  Report Type: 
  Country: None (occurrence: None)
  Receive Date: 20110721
  Receipt Date: 20110718
  Transmission Date: 20111222
  Serious: Yes (Other)
  Sender: FDA-Public Use
  Company Number: US-GLAXOSMITHKLINE-A0937386A

PATIENT
  Age: 82 Year
  Sex: Female

DRUGS (1)
  1. PROMACTA [Suspect]
     Indication: THROMBOCYTOPENIA
     Dosage: 50MG PER DAY
     Dates: start: 20110101, end: 20110404

REACTIONS (3)
  - DRUG INEFFECTIVE [None]
  - NEOPLASM MALIGNANT [None]
  - HAEMATOLOGICAL MALIGNANCY [None]
